FAERS Safety Report 5407367-6 (Version None)
Quarter: 2007Q3

REPORT INFORMATION
  Report Type: 
  Country: None (occurrence: None)
  Receive Date: 20070807
  Receipt Date: 20070725
  Transmission Date: 20080115
  Serious: Yes (Other)
  Sender: FDA-Public Use
  Company Number: JP-ELI_LILLY_AND_COMPANY-JP200707007016

PATIENT
  Age: 55 Year
  Sex: Male

DRUGS (5)
  1. GEMZAR [Suspect]
     Indication: BILE DUCT CANCER
     Dosage: 1700 MG, OTHER
     Route: 042
     Dates: start: 20060401, end: 20060101
  2. GEMZAR [Suspect]
     Dosage: 800 MG, OTHER
     Route: 042
     Dates: start: 20060101
  3. TS 1 /JPN/ [Concomitant]
     Indication: BILE DUCT CANCER
     Dosage: 120 MG, DAILY (1/D)
     Dates: start: 20060401, end: 20060101
  4. TS 1 /JPN/ [Concomitant]
     Dosage: 80 MG, DAILY (1/D)
     Dates: start: 20060101
  5. TS 1 /JPN/ [Concomitant]
     Dosage: UNK, UNK
     Dates: start: 20070101

REACTIONS (5)
  - ANOREXIA [None]
  - LUNG NEOPLASM [None]
  - MALIGNANT NEOPLASM PROGRESSION [None]
  - STOMATITIS [None]
  - WHITE BLOOD CELL COUNT DECREASED [None]
